FAERS Safety Report 14497369 (Version 7)
Quarter: 2019Q1

REPORT INFORMATION
  Report Type: Spontaneous
  Country: BR (occurrence: BR)
  Receive Date: 20180207
  Receipt Date: 20190131
  Transmission Date: 20190417
  Serious: Yes (Hospitalization)
  Sender: FDA-Public Use
  Company Number: BR-GLAXOSMITHKLINE-BR2016GSK066828

PATIENT
  Sex: Female
  Weight: 54 kg

DRUGS (4)
  1. LOSARTAN. [Concomitant]
     Active Substance: LOSARTAN
     Indication: ILL-DEFINED DISORDER
     Dosage: 1 DF, BID (12/12 H)
  2. PROZAC (FLUOXETINE HCL) [Concomitant]
     Indication: ILL-DEFINED DISORDER
     Dosage: 250 MG, UNK
  3. ANNITA (NITAZOXANIDE) [Concomitant]
     Indication: HELMINTHIC INFECTION
     Dosage: 500 MG, UNK
  4. BENLYSTA [Suspect]
     Active Substance: BELIMUMAB
     Indication: SYSTEMIC LUPUS ERYTHEMATOSUS
     Dosage: 510 MG, UNK
     Dates: start: 20160504

REACTIONS (11)
  - Weight increased [Unknown]
  - Inappropriate schedule of product administration [Recovered/Resolved]
  - Herpes virus infection [Unknown]
  - Weight decreased [Unknown]
  - Product dose omission [Not Recovered/Not Resolved]
  - Circumstance or information capable of leading to medication error [Recovered/Resolved]
  - Influenza [Unknown]
  - Feeling abnormal [Unknown]
  - Oropharyngeal pain [Unknown]
  - Accidental underdose [Unknown]
  - Ill-defined disorder [Unknown]
